FAERS Safety Report 14967679 (Version 1)
Quarter: 2018Q2

REPORT INFORMATION
  Report Type: Spontaneous
  Country: US (occurrence: US)
  Receive Date: 20180511
  Receipt Date: 20180511
  Transmission Date: 20180711
  Serious: Yes (Hospitalization)
  Sender: FDA-Public Use
  Company Number: None

PATIENT
  Age: 45 Year
  Sex: Female

DRUGS (13)
  1. METHOCARBAM TAB 750MG [Concomitant]
     Dates: start: 20180510
  2. HYDROCO/APAP 5-35MG TAB [Concomitant]
     Dates: start: 20180510
  3. SPIRONOLACT TAB 100MG [Concomitant]
     Dates: start: 20171120
  4. MEYHTLPRED TAB 4MG [Concomitant]
     Dates: start: 20180508
  5. ACTEMRA [Suspect]
     Active Substance: TOCILIZUMAB
     Indication: RHEUMATOID ARTHRITIS
     Route: 058
     Dates: start: 20170321
  6. DULOXETINE CAP 60MG [Concomitant]
     Dates: start: 20180224
  7. IMURAN TAB 50MG [Concomitant]
  8. BENZONATATE CAP 200MG [Concomitant]
     Dates: start: 20180426
  9. PREDNISONE TAB 20MG [Concomitant]
     Dates: start: 20180405
  10. TRAZODONE [Concomitant]
     Active Substance: TRAZODONE HYDROCHLORIDE
     Dates: start: 20180124
  11. SEROQUEL XR TAB 200MG [Concomitant]
     Dates: start: 20171222
  12. TRINESSA  TAB [Concomitant]
     Dates: start: 20180503
  13. DOXYCYC MONO CAP 100 MG [Concomitant]
     Dates: start: 20180405

REACTIONS (1)
  - Infection [None]

NARRATIVE: CASE EVENT DATE: 20180510
